FAERS Safety Report 7863388-5 (Version None)
Quarter: 2011Q4

REPORT INFORMATION
  Report Type: 
  Country: None (occurrence: None)
  Receive Date: 20111027
  Receipt Date: 20101203
  Transmission Date: 20120403
  Serious: No
  Sender: FDA-Public Use
  Company Number: US-AMGEN-USASP2010007549

PATIENT
  Age: 54 Year
  Sex: Female
  Weight: 285 kg

DRUGS (5)
  1. METHOTREXATE [Concomitant]
     Dosage: 2.5 MG, UNK
  2. FOLIC ACID [Concomitant]
     Dosage: 1 MG, UNK
  3. TRIAMTERENE AND HYDROCHLOROTHIAZIDE [Concomitant]
     Dosage: UNK
  4. ENBREL [Suspect]
     Indication: PRODUCT USED FOR UNKNOWN INDICATION
     Dosage: 50 MG, QWK
  5. CELEBREX [Concomitant]
     Dosage: 50 MG, UNK

REACTIONS (1)
  - INJECTION SITE SWELLING [None]
